FAERS Safety Report 9368814 (Version 1)
Quarter: 2013Q2

REPORT INFORMATION
  Report Type: Spontaneous
  Country: US (occurrence: US)
  Receive Date: 20130626
  Receipt Date: 20130626
  Transmission Date: 20140414
  Serious: Yes (Hospitalization)
  Sender: FDA-Public Use
  Company Number: US-B.I. PHARMACEUTICALS,INC./RIDGEFIELD-2013-BI-17783BP

PATIENT
  Age: 56 Year
  Sex: Female
  Weight: 94 kg

DRUGS (15)
  1. SPIRIVA [Suspect]
     Indication: ASTHMA
     Dosage: 18 MCG
     Route: 055
     Dates: start: 2004
  2. PROTONIX [Concomitant]
     Indication: GASTROOESOPHAGEAL REFLUX DISEASE
     Dosage: 40 MG
     Route: 048
  3. SIMVASTATIN [Concomitant]
     Indication: BLOOD CHOLESTEROL INCREASED
     Dosage: 20 MG
  4. LASIX [Concomitant]
     Indication: FLUID RETENTION
     Dosage: 20 MG
  5. SYNTHROID [Concomitant]
     Indication: THYROID DISORDER
     Dosage: 0.112 MG
     Dates: start: 1995
  6. SYNTHROID [Concomitant]
     Dosage: 0.05 MG
     Dates: start: 1995
  7. CLARINEX D [Concomitant]
     Indication: HYPERSENSITIVITY
     Route: 048
     Dates: start: 2002
  8. CLARINEX D [Concomitant]
     Indication: ASTHMA
  9. FENOFIBRATE [Concomitant]
     Dosage: 160 MG
     Route: 048
  10. LEXAPRO [Concomitant]
     Dosage: 20 MG
     Route: 048
  11. TOPOMAX [Concomitant]
     Indication: MIGRAINE
     Dosage: 100 MG
  12. DITROPAN XL [Concomitant]
     Dosage: 15 MG
  13. ALLIGN [Concomitant]
     Indication: SUPPLEMENTATION THERAPY
  14. DIOVAN [Concomitant]
     Dosage: 80 MG
     Route: 048
  15. ACETYLECYTEINE/ALBUTEROL VIA NEBULIZER [Concomitant]
     Dosage: (FORMULATION: INHALATION SOLUTION
     Route: 055

REACTIONS (4)
  - Pseudomonas infection [Not Recovered/Not Resolved]
  - Incorrect route of drug administration [Recovered/Resolved]
  - Weight increased [Not Recovered/Not Resolved]
  - Mastoiditis [Not Recovered/Not Resolved]
